FAERS Safety Report 4620444-2 (Version None)
Quarter: 2005Q1

REPORT INFORMATION
  Report Type: 
  Country: None (occurrence: None)
  Receive Date: 20050321
  Receipt Date: 20050321
  Transmission Date: 20050727
  Serious: Yes (Hospitalization)
  Sender: FDA-Public Use
  Company Number: None

PATIENT
  Age: 50 Year
  Sex: Male
  Weight: 104.3273 kg

DRUGS (1)
  1. MAGNESIUM SULFATE [Suspect]
     Dosage: INTERVENOUS
     Route: 042
     Dates: start: 20050118, end: 20050123

REACTIONS (1)
  - STAPHYLOCOCCAL INFECTION [None]
